FAERS Safety Report 6739230-2 (Version None)
Quarter: 2010Q2

REPORT INFORMATION
  Report Type: 
  Country: None (occurrence: None)
  Receive Date: 20100524
  Receipt Date: 20100524
  Transmission Date: 20101027
  Serious: No
  Sender: FDA-Public Use
  Company Number: None

PATIENT
  Age: 88 Year
  Sex: Female

DRUGS (1)
  1. LEVAQUIN [Suspect]
     Dosage: 500 MG ONCE IV
     Route: 042
     Dates: start: 20100523, end: 20100523

REACTIONS (1)
  - INFUSION SITE ERYTHEMA [None]
